FAERS Safety Report 25494667 (Version 2)
Quarter: 2025Q3

REPORT INFORMATION
  Report Type: Spontaneous
  Country: EU (occurrence: EU)
  Receive Date: 20250630
  Receipt Date: 20250819
  Transmission Date: 20251020
  Serious: Yes (Other)
  Sender: NOVARTIS
  Company Number: EU-002147023-NVSC2025IT102328

PATIENT
  Age: 7 Year
  Sex: Female
  Weight: 30 kg

DRUGS (9)
  1. CYCLOSPORINE [Suspect]
     Active Substance: CYCLOSPORINE
     Indication: Generalised pustular psoriasis
     Dosage: 3.5 MG/KG, QD
     Route: 065
  2. CYCLOSPORINE [Suspect]
     Active Substance: CYCLOSPORINE
     Dosage: 100 MG, QD (50 MG TABLETS PER OS, 2 TABLETS PER DAY EVERYDAY (1 IN THE MORNING AND 1 IN THE EVENING)
     Route: 048
     Dates: start: 20221103, end: 20221116
  3. IXEKIZUMAB [Suspect]
     Active Substance: IXEKIZUMAB
     Indication: Generalised pustular psoriasis
     Route: 065
  4. IXEKIZUMAB [Suspect]
     Active Substance: IXEKIZUMAB
     Dosage: 40 MG, Q4W
     Route: 065
  5. IXEKIZUMAB [Suspect]
     Active Substance: IXEKIZUMAB
     Route: 058
     Dates: start: 20221116
  6. IXEKIZUMAB [Suspect]
     Active Substance: IXEKIZUMAB
     Dosage: 40 MG, Q4W
     Route: 065
     Dates: end: 20240215
  7. PREDNISONE [Suspect]
     Active Substance: PREDNISONE
     Indication: Generalised pustular psoriasis
     Dosage: 12.5 MG, QD
     Route: 065
  8. PREDNISONE [Suspect]
     Active Substance: PREDNISONE
     Dosage: 12.5 MG, QD (25 MG TABLETS PER OS, HALF TABLETS PER DAY THE FIRST FIVE DAYS)
     Route: 065
     Dates: start: 20221122
  9. PREDNISONE [Suspect]
     Active Substance: PREDNISONE
     Dosage: 5 MG, BID (5 MG TABLETS PER OS, 2 TABLETS PER DAY FOR FIVE DAYS, THEN 1 AND A HALF TABLETS FOR FIVE
     Route: 065
     Dates: start: 20221122, end: 20221216

REACTIONS (6)
  - Hyperpyrexia [Recovering/Resolving]
  - Psoriasis [Recovering/Resolving]
  - Malaise [Recovering/Resolving]
  - Pruritus [Recovering/Resolving]
  - Pain [Recovering/Resolving]
  - Drug ineffective [Unknown]

NARRATIVE: CASE EVENT DATE: 20221015
